FAERS Safety Report 7262381-3 (Version None)
Quarter: 2011Q1

REPORT INFORMATION
  Report Type: 
  Country: None (occurrence: None)
  Receive Date: 20110130
  Receipt Date: 20101116
  Transmission Date: 20110831
  Serious: No
  Sender: FDA-Public Use
  Company Number: US-ABBOTT-10P-163-0685924-00

PATIENT
  Age: 36 Year
  Sex: Female

DRUGS (15)
  1. ACIPHEX [Concomitant]
     Indication: GASTROOESOPHAGEAL REFLUX DISEASE
  2. ENTOCORT EC [Concomitant]
     Indication: CROHN'S DISEASE
  3. SEASONALE [Concomitant]
     Indication: PRODUCT USED FOR UNKNOWN INDICATION
  4. CORTIFOAM [Concomitant]
     Indication: ANALGESIC THERAPY
     Route: 054
  5. AMARYL [Concomitant]
     Indication: TYPE 2 DIABETES MELLITUS
  6. METOPROLOL TARTRATE [Concomitant]
     Indication: HEADACHE
  7. VIT C [Concomitant]
     Indication: VITAMIN SUPPLEMENTATION
  8. MULTIVIT [Concomitant]
     Indication: VITAMIN SUPPLEMENTATION
     Dosage: DAILY
  9. HUMIRA [Suspect]
     Indication: CROHN'S DISEASE
     Dates: start: 20101112
  10. PAXIL [Concomitant]
     Indication: ANXIETY
  11. METFORMIN HCL [Concomitant]
     Indication: TYPE 2 DIABETES MELLITUS
  12. ELAVIL [Concomitant]
     Indication: INTESTINAL RESECTION
  13. ZOCOR [Concomitant]
     Indication: BLOOD CHOLESTEROL INCREASED
  14. METOPROLOL TARTRATE [Concomitant]
     Indication: HYPERTENSION
  15. PENTASA [Concomitant]
     Indication: CROHN'S DISEASE

REACTIONS (2)
  - PAIN [None]
  - ERYTHEMA [None]
